FAERS Safety Report 5918871-6 (Version None)
Quarter: 2008Q4

REPORT INFORMATION
  Report Type: 
  Country: None (occurrence: None)
  Receive Date: 20081015
  Receipt Date: 20080910
  Transmission Date: 20090506
  Serious: No
  Sender: FDA-Public Use
  Company Number: US-BAYER-200833610NA

PATIENT
  Age: 33 Year
  Sex: Female
  Weight: 61 kg

DRUGS (1)
  1. OCELLA TABLETS [Suspect]
     Indication: ORAL CONTRACEPTION
     Route: 048
     Dates: start: 20080701

REACTIONS (2)
  - MENSTRUAL DISORDER [None]
  - VAGINAL DISCHARGE [None]
